FAERS Safety Report 9097127 (Version 1)
Quarter: 2013Q1

REPORT INFORMATION
  Report Type: Spontaneous
  Country: BR (occurrence: BR)
  Receive Date: 20130212
  Receipt Date: 20130212
  Transmission Date: 20140127
  Serious: Yes (Death)
  Sender: FDA-Public Use
  Company Number: PHHY2013BR013340

PATIENT
  Age: 83 Year
  Sex: Male

DRUGS (1)
  1. DIOVAN [Suspect]
     Indication: HYPERTENSION
     Dosage: 1 DF, (80 MG), PER DAY
     Route: 048

REACTIONS (1)
  - Acute myocardial infarction [Fatal]
